FAERS Safety Report 23320591 (Version 1)
Quarter: 2023Q4

REPORT INFORMATION
  Report Type: Report from Study
  Country: US (occurrence: US)
  Receive Date: 20231220
  Receipt Date: 20231220
  Transmission Date: 20240110
  Serious: Yes (Other)
  Sender: FDA-Public Use
  Company Number: US-GILEAD-2023-0655586

PATIENT

DRUGS (1)
  1. AZTREONAM LYSINE [Suspect]
     Active Substance: AZTREONAM LYSINE
     Indication: Product used for unknown indication
     Dosage: 75 MG TAKEN 28 DAYS ON AND 28 DAYS OFF. QUANTITY OF 84
     Route: 065

REACTIONS (1)
  - Mechanical ventilation [Not Recovered/Not Resolved]
